FAERS Safety Report 25434235 (Version 4)
Quarter: 2025Q3

REPORT INFORMATION
  Report Type: Spontaneous
  Country: IL (occurrence: IL)
  Receive Date: 20250613
  Receipt Date: 20250723
  Transmission Date: 20251020
  Serious: No
  Sender: PFIZER
  Company Number: IL-PFIZER INC-PV202500070112

PATIENT
  Age: 10 Year
  Sex: Female

DRUGS (1)
  1. NGENLA [Suspect]
     Active Substance: SOMATROGON-GHLA
     Dosage: 24 MG, WEEKLY (ONCE A WEEK INJECTION)
     Route: 058
     Dates: start: 20250512

REACTIONS (1)
  - Injection site pain [Unknown]
